FAERS Safety Report 6390075-5 (Version None)
Quarter: 2009Q4

REPORT INFORMATION
  Report Type: 
  Country: None (occurrence: None)
  Receive Date: 20091006
  Receipt Date: 20091002
  Transmission Date: 20100525
  Serious: Yes (Life-Threatening, Hospitalization)
  Sender: FDA-Public Use
  Company Number: GB-B.I. PHARMACEUTICALS,INC./RIDGEFIELD-2009-UK-00856UK

PATIENT
  Age: 11 Year
  Sex: Male
  Weight: 32.7 kg

DRUGS (11)
  1. CLONIDINE [Suspect]
     Indication: PAIN
     Dosage: 25 MCG
     Dates: start: 20090919, end: 20090922
  2. BACLOFEN [Concomitant]
  3. BUSCOPAN [Concomitant]
  4. CARBAMAZEPINE [Concomitant]
  5. CLOBAZAM [Concomitant]
  6. DOMPERIDONE [Concomitant]
  7. NULYTELY [Concomitant]
  8. OMEPRAZOLE [Concomitant]
  9. ONDANSETRON [Concomitant]
  10. PARACETAMOL [Concomitant]
  11. TRAMADOL HYDROCHLORIDE [Concomitant]

REACTIONS (1)
  - WITHDRAWAL HYPERTENSION [None]
